FAERS Safety Report 10467884 (Version 3)
Quarter: 2014Q4

REPORT INFORMATION
  Report Type: Report from Study
  Country: MX (occurrence: MX)
  Receive Date: 20140922
  Receipt Date: 20141007
  Transmission Date: 20150528
  Serious: Yes (Other)
  Sender: FDA-Public Use
  Company Number: PHHY2014MX077385

PATIENT
  Age: 92 Year
  Sex: Female

DRUGS (7)
  1. EXELON [Concomitant]
     Active Substance: RIVASTIGMINE TARTRATE
     Indication: DEMENTIA ALZHEIMER^S TYPE
     Dosage: 9.5 MG, DAILY (ONE ADHESIVE 18 MG/10 CM2 PER DAY)
     Route: 062
     Dates: start: 2008, end: 2009
  2. ANARA [Concomitant]
     Indication: GASTRIC DISORDER
     Dosage: UNK, Q72H (EVERY THIRD DAY)
     Route: 065
  3. EXELON [Concomitant]
     Active Substance: RIVASTIGMINE TARTRATE
     Dosage: 13.3 MG, DAILY (ONE ADHESIVE 27 MG/15 CM2 DAILY)
     Route: 062
     Dates: start: 201408
  4. EXELON [Concomitant]
     Active Substance: RIVASTIGMINE TARTRATE
     Dosage: 9.5 MG, DAILY (ONE ADHESIVE 18 MG/10 CM2 PER DAY)
     Route: 062
     Dates: start: 2010, end: 201408
  5. SENNOSIDE [Concomitant]
     Active Substance: SENNOSIDES
     Indication: URINARY TRACT DISORDER
     Dosage: UNK
     Route: 065
  6. AROPAX [Suspect]
     Active Substance: PAROXETINE HYDROCHLORIDE
     Indication: DEPRESSION
     Dosage: UNK
     Route: 065
     Dates: end: 201408
  7. ZYPREXA [Concomitant]
     Active Substance: OLANZAPINE
     Indication: PRODUCT USED FOR UNKNOWN INDICATION
     Dosage: UNK
     Route: 065
     Dates: start: 2010

REACTIONS (4)
  - Petit mal epilepsy [Not Recovered/Not Resolved]
  - Crying [Recovered/Resolved]
  - Logorrhoea [Recovered/Resolved]
  - Insomnia [Recovered/Resolved]

NARRATIVE: CASE EVENT DATE: 2012
